FAERS Safety Report 14555273 (Version 1)
Quarter: 2018Q1

REPORT INFORMATION
  Report Type: Spontaneous
  Country: US (occurrence: US)
  Receive Date: 20180219
  Receipt Date: 20180219
  Transmission Date: 20180509
  Serious: No
  Sender: FDA-Public Use
  Company Number: None

PATIENT
  Age: 73 Year
  Sex: Male

DRUGS (5)
  1. BUMETANIDE. [Concomitant]
     Active Substance: BUMETANIDE
  2. ELIQUIS [Concomitant]
     Active Substance: APIXABAN
  3. LOSARTAN. [Concomitant]
     Active Substance: LOSARTAN
  4. LOSARTAN. [Suspect]
     Active Substance: LOSARTAN
     Indication: CARDIAC FAILURE CONGESTIVE
     Dosage: ?          QUANTITY:180 TABLET(S);?
     Route: 048
     Dates: start: 20161124, end: 20170615
  5. PREDNISONE. [Concomitant]
     Active Substance: PREDNISONE

REACTIONS (3)
  - Pruritus [None]
  - Dyskinesia [None]
  - Spinal compression fracture [None]

NARRATIVE: CASE EVENT DATE: 20171101
